FAERS Safety Report 15835984 (Version 3)
Quarter: 2024Q4

REPORT INFORMATION
  Report Type: Spontaneous
  Country: FR (occurrence: FR)
  Receive Date: 20190117
  Receipt Date: 20241016
  Transmission Date: 20250115
  Serious: Yes (Death, Hospitalization, Other)
  Sender: ROCHE
  Company Number: FR-ROCHE-1365090

PATIENT
  Age: 76 Year
  Sex: Female

DRUGS (3)
  1. MYCOPHENOLATE MOFETIL [Suspect]
     Active Substance: MYCOPHENOLATE MOFETIL
     Indication: Pemphigoid
     Dosage: STARTED AT MONTH 8.
     Route: 065
  2. CLOBETASOL PROPIONATE [Suspect]
     Active Substance: CLOBETASOL PROPIONATE
     Indication: Pemphigoid
     Dosage: TAPERED TO DOSE LOWER THAN 10 G/D BUT AS BULLOUS PEMPHIGOID REPLAPSED SO CURRENT DOSE WAS 30 G/D
     Route: 061
  3. CLOBETASOL PROPIONATE [Suspect]
     Active Substance: CLOBETASOL PROPIONATE
     Dosage: CUURENT TREATMENT
     Route: 061

REACTIONS (5)
  - Septic shock [Fatal]
  - Off label use [Fatal]
  - Necrotising fasciitis [Fatal]
  - Staphylococcal infection [Unknown]
  - Streptococcal infection [Unknown]
